FAERS Safety Report 5293637-1 (Version None)
Quarter: 2007Q2

REPORT INFORMATION
  Report Type: 
  Country: None (occurrence: None)
  Receive Date: 20070411
  Receipt Date: 20070328
  Transmission Date: 20071010
  Serious: Yes (Hospitalization)
  Sender: FDA-Public Use
  Company Number: ZA-ELI_LILLY_AND_COMPANY-ZA200703006511

PATIENT
  Age: 30 Year
  Sex: Female

DRUGS (3)
  1. CYMBALTA [Suspect]
     Indication: MAJOR DEPRESSION
     Dosage: 60 MG, DAILY (1/D)
     Route: 048
     Dates: start: 20050101
  2. REMERON [Concomitant]
     Indication: PANIC DISORDER
     Dosage: 30 MG, DAILY (1/D)
     Route: 048
     Dates: start: 20060901
  3. NORDETTE-21 [Concomitant]
     Indication: CONTRACEPTION
     Dosage: 1 D/F, DAILY (1/D)
     Route: 048

REACTIONS (3)
  - ABDOMINAL PAIN [None]
  - ENDOMETRIOSIS [None]
  - LIVER DISORDER [None]
